FAERS Safety Report 9145436 (Version 1)
Quarter: 2013Q1

REPORT INFORMATION
  Report Type: Spontaneous
  Country: US (occurrence: None)
  Receive Date: 20130226
  Receipt Date: 20130226
  Transmission Date: 20140127
  Serious: No
  Sender: FDA-Public Use
  Company Number: None

PATIENT
  Age: 64 Year
  Sex: Female

DRUGS (1)
  1. COPAXONE [Suspect]
     Dosage: 20MG/ML DAILY IM
     Route: 030
     Dates: start: 20120724, end: 20130219

REACTIONS (3)
  - Injection site reaction [None]
  - Injection site urticaria [None]
  - Injection site abscess [None]
